FAERS Safety Report 9723081 (Version 1)
Quarter: 2013Q4

REPORT INFORMATION
  Report Type: Spontaneous
  Country: US (occurrence: None)
  Receive Date: 20131127
  Receipt Date: 20131127
  Transmission Date: 20140711
  Serious: Yes (Other)
  Sender: FDA-Public Use
  Company Number: None

PATIENT
  Age: 54 Year
  Sex: Female

DRUGS (1)
  1. LASIX [Suspect]
     Indication: HYPERTENSION

REACTIONS (4)
  - Periodontal disease [None]
  - Gingival disorder [None]
  - Dry mouth [None]
  - Therapy cessation [None]
